FAERS Safety Report 17879339 (Version 1)
Quarter: 2020Q2

REPORT INFORMATION
  Report Type: Spontaneous
  Country: CA (occurrence: CA)
  Receive Date: 20200610
  Receipt Date: 20200610
  Transmission Date: 20200714
  Serious: Yes (Hospitalization, Other)
  Sender: FDA-Public Use
  Company Number: NVSC2020CA160327

PATIENT
  Age: 47 Year
  Sex: Female

DRUGS (2)
  1. ACETAMINOPHEN (PARACETAMOL) [Suspect]
     Active Substance: ACETAMINOPHEN
     Indication: PAIN IN EXTREMITY
     Dosage: 1000 MG, Q4H (500-1000 MG) (TOTAL DAILY DOSE: 2500-4000 MG)
     Route: 065
  2. WARFARIN [Interacting]
     Active Substance: WARFARIN
     Indication: PRODUCT USED FOR UNKNOWN INDICATION
     Route: 065

REACTIONS (5)
  - Swelling [Unknown]
  - Drug interaction [Unknown]
  - Anticoagulation drug level above therapeutic [Recovering/Resolving]
  - Ecchymosis [Unknown]
  - Haemorrhage [Unknown]
